FAERS Safety Report 11831990 (Version 1)
Quarter: 2015Q4

REPORT INFORMATION
  Report Type: Spontaneous
  Country: US (occurrence: US)
  Receive Date: 20151214
  Receipt Date: 20151214
  Transmission Date: 20160305
  Serious: No
  Sender: FDA-Public Use
  Company Number: US-ENDO PHARMACEUTICALS INC.-2015-004565

PATIENT
  Age: 65 Year
  Sex: Male
  Weight: 88.53 kg

DRUGS (5)
  1. AVEED [Suspect]
     Active Substance: TESTOSTERONE UNDECANOATE
     Route: 065
     Dates: start: 201510, end: 201510
  2. RAMIPRIL. [Concomitant]
     Active Substance: RAMIPRIL
     Indication: CAROTID ARTERY OCCLUSION
  3. SIMVASTATIN. [Concomitant]
     Active Substance: SIMVASTATIN
     Indication: BLOOD CHOLESTEROL
  4. LEVOTHYROXINE. [Concomitant]
     Active Substance: LEVOTHYROXINE
     Indication: HYPOTHYROIDISM
  5. AVEED [Suspect]
     Active Substance: TESTOSTERONE UNDECANOATE
     Indication: BLOOD TESTOSTERONE DECREASED
     Route: 065
     Dates: start: 20151130

REACTIONS (1)
  - Blood cortisol decreased [Not Recovered/Not Resolved]

NARRATIVE: CASE EVENT DATE: 201510
